FAERS Safety Report 11335922 (Version 1)
Quarter: 2015Q3

REPORT INFORMATION
  Report Type: Spontaneous
  Country: US (occurrence: US)
  Receive Date: 20150804
  Receipt Date: 20150804
  Transmission Date: 20151125
  Serious: Yes (Other)
  Sender: FDA-Public Use
  Company Number: US-AUROBINDO-AUR-APU-2015-06209

PATIENT
  Age: 17 Year
  Sex: Female

DRUGS (1)
  1. LEVETIRACTAM [Suspect]
     Active Substance: LEVETIRACETAM
     Indication: PRODUCT USED FOR UNKNOWN INDICATION
     Dosage: 250 MG, TWO TIMES A DAY
     Route: 065
     Dates: start: 20130625

REACTIONS (4)
  - Ligament rupture [Unknown]
  - Drug ineffective [Unknown]
  - Seizure [Unknown]
  - Joint dislocation [Unknown]

NARRATIVE: CASE EVENT DATE: 20130625
